FAERS Safety Report 16102603 (Version 4)
Quarter: 2019Q2

REPORT INFORMATION
  Report Type: Spontaneous
  Country: DE (occurrence: DE)
  Receive Date: 20190321
  Receipt Date: 20190416
  Transmission Date: 20190711
  Serious: Yes (Other)
  Sender: FDA-Public Use
  Company Number: PHHY2019DE062990

PATIENT
  Age: 63 Year
  Sex: Male

DRUGS (3)
  1. TERBINAFINE. [Suspect]
     Active Substance: TERBINAFINE
     Indication: PRODUCT USED FOR UNKNOWN INDICATION
     Dosage: UNK
     Route: 065
  2. SECUKINUMAB. [Suspect]
     Active Substance: SECUKINUMAB
     Indication: ACUTE GENERALISED EXANTHEMATOUS PUSTULOSIS
     Dosage: 300 MG, ONCE/SINGLE
     Route: 058
  3. PREDNISONE. [Suspect]
     Active Substance: PREDNISONE
     Indication: ACUTE GENERALISED EXANTHEMATOUS PUSTULOSIS
     Dosage: 1 MG/KG, QD
     Route: 048

REACTIONS (9)
  - Rash generalised [Recovered/Resolved]
  - Rash [Recovered/Resolved]
  - Rash pustular [Recovered/Resolved]
  - Inflammatory marker increased [Recovered/Resolved]
  - Product use in unapproved indication [Unknown]
  - Acute generalised exanthematous pustulosis [Recovered/Resolved]
  - Pyrexia [Recovered/Resolved]
  - Drug ineffective [Unknown]
  - Neutrophilia [Recovered/Resolved]
